FAERS Safety Report 24543270 (Version 4)
Quarter: 2025Q3

REPORT INFORMATION
  Report Type: Spontaneous
  Country: US (occurrence: US)
  Receive Date: 20241024
  Receipt Date: 20250810
  Transmission Date: 20251020
  Serious: Yes (Other)
  Sender: ALEXION PHARMACEUTICALS
  Company Number: US-AstraZeneca-CH-00726222AP

PATIENT
  Sex: Female

DRUGS (1)
  1. WAINUA [Suspect]
     Active Substance: EPLONTERSEN
     Dosage: 45 MILLIGRAM, QMONTH

REACTIONS (3)
  - Cardiac failure [Unknown]
  - Product dose omission issue [Unknown]
  - Wrong technique in device usage process [Unknown]
